FAERS Safety Report 21611027 (Version 6)
Quarter: 2023Q4

REPORT INFORMATION
  Report Type: Spontaneous
  Country: CA (occurrence: CA)
  Receive Date: 20221117
  Receipt Date: 20231030
  Transmission Date: 20240109
  Serious: Yes (Other)
  Sender: FDA-Public Use
  Company Number: CA-TAKEDA-2022TUS084675

PATIENT
  Age: 24 Year
  Sex: Male

DRUGS (35)
  1. ALVESCO [Suspect]
     Active Substance: CICLESONIDE
     Dosage: UNK
     Route: 055
  2. OMNARIS [Suspect]
     Active Substance: CICLESONIDE
     Dosage: UNK
     Route: 045
  3. ROFLUMILAST [Suspect]
     Active Substance: ROFLUMILAST
     Dosage: UNK
  4. VEDOLIZUMAB [Suspect]
     Active Substance: VEDOLIZUMAB
     Indication: Colitis ulcerative
     Dosage: 300 MILLIGRAM
     Route: 042
     Dates: start: 20200610
  5. VEDOLIZUMAB [Suspect]
     Active Substance: VEDOLIZUMAB
     Indication: Colitis ulcerative
     Dosage: 300 MILLIGRAM
     Route: 042
     Dates: start: 20221116
  6. VEDOLIZUMAB [Suspect]
     Active Substance: VEDOLIZUMAB
     Indication: Colitis ulcerative
     Dosage: 300 MILLIGRAM
     Route: 042
     Dates: start: 20221116
  7. PANTO [PANTOPRAZOLE SODIUM SESQUIHYDRATE] [Suspect]
     Active Substance: PANTOPRAZOLE SODIUM
     Dosage: UNK
     Route: 042
  8. KAZANO [Suspect]
     Active Substance: ALOGLIPTIN BENZOATE\METFORMIN HYDROCHLORIDE
     Dosage: UNK
     Route: 065
  9. NESINA [Suspect]
     Active Substance: ALOGLIPTIN BENZOATE
     Dosage: UNK
     Route: 065
  10. EDARBYCLOR [Suspect]
     Active Substance: AZILSARTAN KAMEDOXOMIL\CHLORTHALIDONE
     Dosage: UNK
     Route: 065
  11. TACHOSIL [Suspect]
     Active Substance: FIBRINOGEN HUMAN\THROMBIN HUMAN
     Dosage: UNK
  12. PANTOPRAZOLE SODIUM [Suspect]
     Active Substance: PANTOPRAZOLE SODIUM
     Dosage: UNK
     Route: 065
  13. DEXILANT [Suspect]
     Active Substance: DEXLANSOPRAZOLE
     Dosage: UNK
     Route: 065
  14. ACTOS [Suspect]
     Active Substance: PIOGLITAZONE HYDROCHLORIDE
     Dosage: UNK
     Route: 065
  15. FIBRINOGEN [Suspect]
     Active Substance: FIBRINOGEN HUMAN
     Dosage: UNK
  16. GRAVOL [Concomitant]
     Active Substance: DIMENHYDRINATE
     Indication: Nausea
     Dosage: UNK
  17. HUMIRA [Concomitant]
     Active Substance: ADALIMUMAB
     Dosage: UNK
  18. TYSABRI [Concomitant]
     Active Substance: NATALIZUMAB
     Dosage: UNK
  19. SIMPONI [Concomitant]
     Active Substance: GOLIMUMAB
     Dosage: UNK
  20. CIMZIA [Concomitant]
     Active Substance: CERTOLIZUMAB PEGOL
     Dosage: UNK
  21. PURINETHOL [Concomitant]
     Active Substance: MERCAPTOPURINE
     Dosage: UNK
  22. INFLIXIMAB [Concomitant]
     Active Substance: INFLIXIMAB
     Dosage: UNK
  23. IMURAN [Concomitant]
     Active Substance: AZATHIOPRINE
     Dosage: UNK
  24. PENTASA [Concomitant]
     Active Substance: MESALAMINE
     Dosage: UNK
  25. INFLECTRA [Concomitant]
     Active Substance: INFLIXIMAB-DYYB
     Dosage: UNK
  26. ASACOL [Concomitant]
     Active Substance: MESALAMINE
     Dosage: UNK
  27. METHOTREXATE [Concomitant]
     Active Substance: METHOTREXATE
     Dosage: UNK
  28. MESALAMINE [Concomitant]
     Active Substance: MESALAMINE
     Dosage: UNK
  29. STELARA [Concomitant]
     Active Substance: USTEKINUMAB
     Dosage: UNK
  30. MESALAMINE [Concomitant]
     Active Substance: MESALAMINE
     Dosage: UNK
  31. XELJANZ [Concomitant]
     Active Substance: TOFACITINIB CITRATE
     Dosage: UNK
  32. BUDESONIDE [Concomitant]
     Active Substance: BUDESONIDE
     Dosage: UNK
  33. SALOFALK [Concomitant]
     Dosage: UNK
  34. INFLIXIMAB [Concomitant]
     Active Substance: INFLIXIMAB
  35. PARA-AMINOSALICYLIC ACID [Concomitant]
     Active Substance: AMINOSALICYLIC ACID

REACTIONS (2)
  - Inflammatory bowel disease [Not Recovered/Not Resolved]
  - Therapeutic product effect decreased [Not Recovered/Not Resolved]
